FAERS Safety Report 9536659 (Version 1)
Quarter: 2013Q2

REPORT INFORMATION
  Report Type: Spontaneous
  Country: US (occurrence: None)
  Receive Date: 20130517
  Receipt Date: 20130517
  Transmission Date: 20140414
  Serious: No
  Sender: FDA-Public Use
  Company Number: 1000043186

PATIENT
  Age: 57 Year
  Sex: Female

DRUGS (5)
  1. VIIBRYD [Suspect]
     Indication: DEPRESSION
     Route: 048
     Dates: start: 201302, end: 201303
  2. HYDROCHLOROTHIAZIDE (HYDROCHLOROTHIAZIDE) (HYDROCHLOROTHIAZIDE) [Concomitant]
  3. OMEPRAZOLE (OMEPRAZOLE) (OMEPRAZOLE) [Concomitant]
  4. GLUCOSAMINE (GLUCOSAMINE) (GLUCOSAMINE) [Concomitant]
  5. NEURONTIN (GABAPENTIN) (GABAPENTIN) [Concomitant]

REACTIONS (1)
  - Diarrhoea [None]
